FAERS Safety Report 20239012 (Version 2)
Quarter: 2021Q4

REPORT INFORMATION
  Report Type: Spontaneous
  Country: HU (occurrence: HU)
  Receive Date: 20211228
  Receipt Date: 20211228
  Transmission Date: 20220303
  Serious: Yes (Life-Threatening, Other)
  Sender: FDA-Public Use
  Company Number: HU-002147023-NVSC2021HU265795

PATIENT
  Age: 6 Month
  Sex: Female

DRUGS (9)
  1. AZITHROMYCIN [Suspect]
     Active Substance: AZITHROMYCIN
     Indication: Product used for unknown indication
     Dosage: UNK (FOR 6 DAYS)
     Route: 065
  2. ELTROMBOPAG OLAMINE [Suspect]
     Active Substance: ELTROMBOPAG OLAMINE
     Indication: Product used for unknown indication
     Dosage: 1 MILLIGRAM/KILOGRAM(1 MG/KG)
     Route: 065
     Dates: start: 20210312
  3. ELTROMBOPAG OLAMINE [Suspect]
     Active Substance: ELTROMBOPAG OLAMINE
     Dosage: 1 MILLIGRAM/KILOGRAM(1 MG/KG)
     Route: 065
     Dates: start: 20210407, end: 20210423
  4. ELTROMBOPAG OLAMINE [Suspect]
     Active Substance: ELTROMBOPAG OLAMINE
     Dosage: 2 MILLIGRAM/KILOGRAM
     Route: 065
  5. VENTOLIN [Concomitant]
     Active Substance: ALBUTEROL SULFATE
     Indication: Product used for unknown indication
     Dosage: UNK
     Route: 065
  6. METHYLPREDNISOLONE [Concomitant]
     Active Substance: METHYLPREDNISOLONE
     Indication: Product used for unknown indication
     Dosage: 5 MILLIGRAM/KILOGRAM(5 MG/KG)
     Route: 042
     Dates: start: 20210302
  7. METHYLPREDNISOLONE [Concomitant]
     Active Substance: METHYLPREDNISOLONE
     Dosage: 1 MILLIGRAM/KILOGRAM(1 MG/KG)
     Route: 048
  8. METHYLPREDNISOLONE [Concomitant]
     Active Substance: METHYLPREDNISOLONE
     Dosage: UNK MG/KG
     Route: 048
     Dates: end: 20210403
  9. SODIUM CHLORIDE [Concomitant]
     Active Substance: SODIUM CHLORIDE
     Indication: Product used for unknown indication
     Dosage: 3 PERCENT(3 %)
     Route: 065

REACTIONS (7)
  - Platelet count abnormal [Recovered/Resolved]
  - Lymphocyte count increased [Unknown]
  - Gastroenteritis rotavirus [Recovered/Resolved]
  - Megakaryocytes abnormal [Unknown]
  - Marrow hyperplasia [Unknown]
  - Respiratory disorder [Unknown]
  - Pyrexia [Unknown]

NARRATIVE: CASE EVENT DATE: 20210101
